FAERS Safety Report 8258550-6 (Version None)
Quarter: 2012Q2

REPORT INFORMATION
  Report Type: 
  Country: None (occurrence: None)
  Receive Date: 20120404
  Receipt Date: 20120328
  Transmission Date: 20120825
  Serious: Yes (Death, Life-Threatening)
  Sender: FDA-Public Use
  Company Number: JP-CELGENEUS-087-50794-12040087

PATIENT
  Sex: Male
  Weight: 59 kg

DRUGS (4)
  1. VIDAZA [Suspect]
     Dosage: 75 MILLIGRAM/SQ. METER
     Route: 058
     Dates: start: 20110518, end: 20110524
  2. BUSULFEX [Concomitant]
     Route: 065
  3. FLUDARA [Concomitant]
     Route: 065
  4. ETOPOSIDE [Concomitant]
     Route: 065

REACTIONS (7)
  - DISSEMINATED INTRAVASCULAR COAGULATION [None]
  - HAEMATURIA [None]
  - SEPSIS [None]
  - RENAL FAILURE [None]
  - RENAL DISORDER [None]
  - BRONCHOPULMONARY ASPERGILLOSIS [None]
  - AGRANULOCYTOSIS [None]
